FAERS Safety Report 13882263 (Version 1)
Quarter: 2017Q3

REPORT INFORMATION
  Report Type: Spontaneous
  Country: IT (occurrence: IT)
  Receive Date: 20170818
  Receipt Date: 20170818
  Transmission Date: 20171127
  Serious: Yes (Hospitalization)
  Sender: FDA-Public Use
  Company Number: IT-TEVA-789467ACC

PATIENT
  Age: 42 Year
  Sex: Female

DRUGS (5)
  1. COPAXONE [Suspect]
     Active Substance: GLATIRAMER ACETATE
     Indication: MULTIPLE SCLEROSIS
     Dosage: 3 DF WEEKLY
     Route: 058
     Dates: start: 20170301, end: 20170703
  2. COPAXONE [Suspect]
     Active Substance: GLATIRAMER ACETATE
     Indication: SYSTEMIC SCLERODERMA
     Route: 030
     Dates: start: 20170301, end: 20170702
  3. CARDICOR - 2.5 MG  COMPRESSE RECORDATI INDUSTRIA CHIMICAE FARMACEUTICA [Concomitant]
     Indication: PRODUCT USED FOR UNKNOWN INDICATION
     Dosage: 1 DF
  4. EN BGP PRODUCTS S.R.L. [Concomitant]
     Indication: PRODUCT USED FOR UNKNOWN INDICATION
     Route: 048
  5. FLIXOTIDE GLAXOSMITHKLINE S.P.A. [Concomitant]
     Indication: PRODUCT USED FOR UNKNOWN INDICATION
     Route: 055

REACTIONS (6)
  - Anaphylactic shock [Recovered/Resolved]
  - Drug hypersensitivity [Recovering/Resolving]
  - Feeling hot [Recovering/Resolving]
  - Swelling face [Recovering/Resolving]
  - Syncope [Recovering/Resolving]
  - Dysphonia [Recovering/Resolving]

NARRATIVE: CASE EVENT DATE: 20170702
